FAERS Safety Report 10301765 (Version 1)
Quarter: 2014Q3

REPORT INFORMATION
  Report Type: Spontaneous
  Country: US (occurrence: None)
  Receive Date: 20140709
  Receipt Date: 20140709
  Transmission Date: 20150326
  Serious: Yes (Life-Threatening, Hospitalization, Disabling, Other)
  Sender: FDA-Public Use
  Company Number: None

PATIENT
  Age: 36 Year
  Sex: Female
  Weight: 77.57 kg

DRUGS (1)
  1. MIRENA [Suspect]
     Active Substance: LEVONORGESTREL

REACTIONS (7)
  - Ectopic pregnancy [None]
  - Infertility female [None]
  - Volume blood decreased [None]
  - Pelvic pain [None]
  - Hysterectomy [None]
  - Pregnancy with contraceptive device [None]
  - Haemorrhage [None]

NARRATIVE: CASE EVENT DATE: 20120128
